FAERS Safety Report 5003290-X (Version None)
Quarter: 2006Q2

REPORT INFORMATION
  Report Type: 
  Country: None (occurrence: None)
  Receive Date: 20060516
  Receipt Date: 20060505
  Transmission Date: 20061013
  Serious: Yes (Other)
  Sender: FDA-Public Use
  Company Number: US-JNJFOC-20060501926

PATIENT
  Sex: Male

DRUGS (2)
  1. TOPAMAX [Suspect]
  2. PHENYTOIN SODIUM [Suspect]

REACTIONS (2)
  - ANTICONVULSANT DRUG LEVEL INCREASED [None]
  - DRUG INEFFECTIVE [None]
